FAERS Safety Report 15618556 (Version 2)
Quarter: 2019Q1

REPORT INFORMATION
  Report Type: Spontaneous
  Country: US (occurrence: US)
  Receive Date: 20181114
  Receipt Date: 20190319
  Transmission Date: 20190417
  Serious: No
  Sender: FDA-Public Use
  Company Number: US-PFIZER INC-2018454287

PATIENT
  Age: 9 Year
  Sex: Male
  Weight: 22.68 kg

DRUGS (5)
  1. LEVOTHYROXINE. [Concomitant]
     Active Substance: LEVOTHYROXINE
     Indication: PEARSON^S SYNDROME
     Dosage: 37.5 UG, DAILY
  2. LEVOTHYROXINE. [Concomitant]
     Active Substance: LEVOTHYROXINE
     Indication: THYROID DISORDER
     Dosage: 25 UG, DAILY
     Route: 048
  3. GENOTROPIN [Suspect]
     Active Substance: SOMATROPIN
     Indication: BLOOD GROWTH HORMONE
     Dosage: UNK
     Dates: start: 201808
  4. LISINOPRIL. [Concomitant]
     Active Substance: LISINOPRIL
     Indication: BLOOD PRESSURE ABNORMAL
     Dosage: 15 MG, DAILY (5MG TABLETS, 3 TABLETS DAILY)
  5. LISINOPRIL. [Concomitant]
     Active Substance: LISINOPRIL
     Indication: PEARSON^S SYNDROME

REACTIONS (1)
  - Injection site pain [Recovered/Resolved]
